FAERS Safety Report 22260063 (Version 2)
Quarter: 2023Q2

REPORT INFORMATION
  Report Type: Spontaneous
  Country: CN (occurrence: CN)
  Receive Date: 20230427
  Receipt Date: 20230511
  Transmission Date: 20230722
  Serious: Yes (Hospitalization, Other)
  Sender: FDA-Public Use
  Company Number: None

PATIENT
  Age: 31 Year
  Sex: Female

DRUGS (1)
  1. IBUPROFEN [Suspect]
     Active Substance: IBUPROFEN
     Indication: Dysmenorrhoea
     Dosage: 0.3 GRAM (SUSTAINED?RELEASE CAPSULES)
     Route: 048
     Dates: start: 20210709

REACTIONS (2)
  - Nephropathy toxic [None]
  - Acute kidney injury [None]

NARRATIVE: CASE EVENT DATE: 20210709
